FAERS Safety Report 20014198 (Version 3)
Quarter: 2022Q2

REPORT INFORMATION
  Report Type: Spontaneous
  Country: US (occurrence: US)
  Receive Date: 20211029
  Receipt Date: 20220512
  Transmission Date: 20220720
  Serious: No
  Sender: FDA-Public Use
  Company Number: US-PFIZER INC-2019443807

PATIENT
  Age: 49 Year
  Sex: Male

DRUGS (1)
  1. SKELAXIN [Suspect]
     Active Substance: METAXALONE
     Dosage: 800 MG, 2X/DAY

REACTIONS (1)
  - Off label use [Unknown]
